FAERS Safety Report 8561702 (Version 2)
Quarter: 2013Q1

REPORT INFORMATION
  Report Type: Spontaneous
  Country: US (occurrence: US)
  Receive Date: 20120515
  Receipt Date: 20130304
  Transmission Date: 20140127
  Serious: No
  Sender: FDA-Public Use
  Company Number: US-BAYER-2012-044689

PATIENT
  Age: 42 Year
  Sex: Female

DRUGS (1)
  1. MIRENA [Suspect]
     Indication: CONTRACEPTION
     Dosage: 20 ?G/D, CONT
     Route: 015
     Dates: start: 20110610

REACTIONS (6)
  - Device expulsion [None]
  - Device issue [None]
  - Abdominal discomfort [None]
  - Pelvic discomfort [None]
  - Pregnancy with contraceptive device [Recovered/Resolved]
  - Drug ineffective [None]
